FAERS Safety Report 12077151 (Version 1)
Quarter: 2016Q1

REPORT INFORMATION
  Report Type: Spontaneous
  Country: CN (occurrence: CN)
  Receive Date: 20160215
  Receipt Date: 20160215
  Transmission Date: 20160526
  Serious: Yes (Other)
  Sender: FDA-Public Use
  Company Number: CN-GLAXOSMITHKLINE-CN2016GSK020823

PATIENT
  Age: 63 Year
  Sex: Male

DRUGS (1)
  1. CEFUROXIME. [Suspect]
     Active Substance: CEFUROXIME
     Indication: LENS EXTRACTION
     Dosage: 0.1ML OF 10MG SOLUTION OF INTRACAMERAL CEFUROXIME

REACTIONS (2)
  - Retinal detachment [Recovered/Resolved]
  - Macular oedema [Recovered/Resolved]
